FAERS Safety Report 5276303-8 (Version None)
Quarter: 2007Q1

REPORT INFORMATION
  Report Type: 
  Country: None (occurrence: None)
  Receive Date: 20070326
  Receipt Date: 20070314
  Transmission Date: 20070707
  Serious: Yes (Hospitalization)
  Sender: FDA-Public Use
  Company Number: GB-PFIZER INC-2007020002

PATIENT
  Sex: Female

DRUGS (1)
  1. ZYVOX [Suspect]

REACTIONS (3)
  - C-REACTIVE PROTEIN INCREASED [None]
  - RESPIRATORY TRACT INFECTION [None]
  - URINARY TRACT INFECTION [None]
